FAERS Safety Report 19422972 (Version 2)
Quarter: 2021Q3

REPORT INFORMATION
  Report Type: Spontaneous
  Country: US (occurrence: US)
  Receive Date: 20210616
  Receipt Date: 20210917
  Transmission Date: 20211014
  Serious: Yes (Hospitalization)
  Sender: FDA-Public Use
  Company Number: US-SA-2021SA191954

PATIENT
  Age: 58 Year
  Sex: Male

DRUGS (2)
  1. BREXELL [RIVASTIGMINE] [Concomitant]
     Active Substance: RIVASTIGMINE
     Route: 065
  2. LANTUS SOLOSTAR [Suspect]
     Active Substance: INSULIN GLARGINE
     Indication: DIABETES MELLITUS
     Dosage: 50 IU, QD
     Route: 065
     Dates: start: 2015

REACTIONS (6)
  - Product storage error [Unknown]
  - Weight decreased [Unknown]
  - Product dose omission issue [Unknown]
  - Blood glucose increased [Unknown]
  - Vision blurred [Unknown]
  - Blood glucose fluctuation [Unknown]

NARRATIVE: CASE EVENT DATE: 20210618
